FAERS Safety Report 8293778-0 (Version None)
Quarter: 2012Q2

REPORT INFORMATION
  Report Type: 
  Country: None (occurrence: None)
  Receive Date: 20120418
  Receipt Date: 20120407
  Transmission Date: 20120825
  Serious: Yes (Hospitalization, Other)
  Sender: FDA-Public Use
  Company Number: TW-PAR PHARMACEUTICAL, INC-2012SCPR004316

PATIENT

DRUGS (6)
  1. ZOLPIDEM TARTRATE [Suspect]
     Indication: INSOMNIA
     Dosage: 10-20 MG / DAY
     Route: 065
  2. FLUOXETINE [Concomitant]
     Indication: DEPRESSION
     Dosage: UNK, UNKNOWN
     Route: 065
  3. PREDNISOLONE [Concomitant]
     Indication: ANKYLOSING SPONDYLITIS
     Dosage: 5-10 MG/D
     Route: 048
  4. ZOLPIDEM TARTRATE [Suspect]
     Indication: MOOD SWINGS
     Dosage: 20 MG, / DAY
     Route: 065
  5. ZOLPIDEM TARTRATE [Suspect]
     Indication: ANXIETY
     Dosage: 100-200 MG / DAY
     Route: 065
  6. ANALGESICS [Concomitant]
     Indication: ANKYLOSING SPONDYLITIS
     Dosage: UNK, UNKNOWN
     Route: 065

REACTIONS (9)
  - INTENTIONAL DRUG MISUSE [None]
  - DRUG DEPENDENCE [None]
  - TACHYCARDIA [None]
  - CATATONIA [None]
  - WITHDRAWAL SYNDROME [None]
  - LEUKOCYTOSIS [None]
  - PYURIA [None]
  - HAEMATURIA [None]
  - BLOOD PRESSURE INCREASED [None]
